FAERS Safety Report 7090796-5 (Version None)
Quarter: 2010Q4

REPORT INFORMATION
  Report Type: 
  Country: None (occurrence: None)
  Receive Date: 20101109
  Receipt Date: 20101014
  Transmission Date: 20110411
  Serious: Yes (Hospitalization)
  Sender: FDA-Public Use
  Company Number: TW-BRISTOL-MYERS SQUIBB COMPANY-14405047

PATIENT
  Age: 57 Year
  Sex: Female

DRUGS (6)
  1. ABILIFY [Suspect]
     Indication: BIPOLAR I DISORDER
     Dosage: 8AUG08-15SEP08:39DAYS;15SEP08-27OCT08:43DAYS;20MG)5NOV08 ABILIFY(CODE NOT BROKEN)8OCT08;30MG 7NOV08
     Route: 048
     Dates: start: 20080808, end: 20081105
  2. VALPROATE SODIUM [Suspect]
     Indication: BIPOLAR DISORDER
     Dosage: FORM = TABS; 05-NOV-2008 100 MG/DAY
     Route: 048
     Dates: start: 20080808, end: 20081105
  3. LORAZEPAM [Concomitant]
     Dosage: TABS
     Dates: start: 20081007, end: 20081105
  4. AMLODIPINE BESYLATE [Concomitant]
     Dosage: TABS
     Dates: start: 20081007
  5. ZOLPIDEM [Concomitant]
     Dosage: TABS
     Dates: start: 20081028, end: 20081105
  6. PROPRANOLOL [Concomitant]
     Dosage: TABS
     Dates: start: 20081028, end: 20081105

REACTIONS (1)
  - MANIA [None]
